FAERS Safety Report 7793848-7 (Version None)
Quarter: 2011Q4

REPORT INFORMATION
  Report Type: 
  Country: None (occurrence: None)
  Receive Date: 20111004
  Receipt Date: 20110923
  Transmission Date: 20120403
  Serious: Yes (Death)
  Sender: FDA-Public Use
  Company Number: ES-BIOGENIDEC-2011BI026561

PATIENT
  Age: 53 Year
  Sex: Female

DRUGS (5)
  1. TYSABRI [Suspect]
     Indication: PRODUCT USED FOR UNKNOWN INDICATION
     Route: 042
     Dates: start: 20091109, end: 20110118
  2. SYMBICORT [Concomitant]
     Route: 055
  3. TRAMADOL HYDROCHLORIDE [Concomitant]
  4. ANTIHISTAMINE [Concomitant]
  5. ONBREZ BREEZHALER [Concomitant]

REACTIONS (1)
  - ASTHMA [None]
